FAERS Safety Report 11505651 (Version 1)
Quarter: 2015Q3

REPORT INFORMATION
  Report Type: Spontaneous
  Country: US (occurrence: US)
  Receive Date: 20150915
  Receipt Date: 20150915
  Transmission Date: 20151125
  Serious: No
  Sender: FDA-Public Use
  Company Number: US-ROCHE-780934

PATIENT
  Sex: Female

DRUGS (2)
  1. COPEGUS [Suspect]
     Active Substance: RIBAVIRIN
     Indication: HEPATITIS C
     Route: 065
  2. PEGASYS [Suspect]
     Active Substance: PEGINTERFERON ALFA-2A
     Indication: HEPATITIS C
     Route: 065

REACTIONS (9)
  - White blood cell count decreased [Unknown]
  - Vomiting [Unknown]
  - Swollen tongue [Unknown]
  - Glossodynia [Unknown]
  - Stress [Unknown]
  - Anxiety [Unknown]
  - Tongue blistering [Unknown]
  - Depression [Unknown]
  - Nervousness [Unknown]
